FAERS Safety Report 6161244-4 (Version None)
Quarter: 2009Q2

REPORT INFORMATION
  Report Type: 
  Country: None (occurrence: None)
  Receive Date: 20090417
  Receipt Date: 20090408
  Transmission Date: 20091009
  Serious: Yes (Other)
  Sender: FDA-Public Use
  Company Number: OSCN-PR-0801L-0038

PATIENT
  Age: 14 Year
  Sex: Female

DRUGS (1)
  1. OMNISCAN [Suspect]
     Indication: DRUG USE FOR UNKNOWN INDICATION
     Dosage: 0.13 MMOL/KG, SINGLE DOSE, I.V.; SINGLE DOSE
     Route: 042

REACTIONS (11)
  - ASCITES [None]
  - BLOOD ALBUMIN DECREASED [None]
  - GLOMERULONEPHRITIS PROLIFERATIVE [None]
  - HAEMODIALYSIS [None]
  - LUPUS ENCEPHALITIS [None]
  - NEPHROGENIC SYSTEMIC FIBROSIS [None]
  - PANCREATITIS [None]
  - PNEUMONIA STREPTOCOCCAL [None]
  - PROTEIN TOTAL DECREASED [None]
  - RENAL TUBULAR NECROSIS [None]
  - SEPSIS [None]
